FAERS Safety Report 8910181 (Version 1)
Quarter: 2012Q4

REPORT INFORMATION
  Report Type: 
  Country: GB (occurrence: GB)
  Receive Date: 20121114
  Receipt Date: 20121114
  Transmission Date: 20130627
  Serious: Yes (Hospitalization, Other)
  Sender: FDA-Public Use
  Company Number: GB-TEVA-368703ISR

PATIENT
  Sex: Male

DRUGS (2)
  1. WARFARIN [Suspect]
     Indication: PRODUCT USED FOR UNKNOWN INDICATION
     Dosage: Dosage Form: Unspecified
     Route: 065
  2. STELARA [Suspect]
     Indication: PSORIASIS
     Dosage: Dosage Form: Liquid
     Route: 058
     Dates: start: 20110801

REACTIONS (4)
  - Mesenteric vein thrombosis [Recovered/Resolved]
  - Protein S deficiency [Unknown]
  - Psoriasis [Unknown]
  - Haemorrhage [Unknown]
